FAERS Safety Report 7555436-7 (Version None)
Quarter: 2011Q2

REPORT INFORMATION
  Report Type: 
  Country: None (occurrence: None)
  Receive Date: 20110617
  Receipt Date: 20110610
  Transmission Date: 20111010
  Serious: Yes (Other)
  Sender: FDA-Public Use
  Company Number: US-GENENTECH-317077

PATIENT
  Sex: Female
  Weight: 60.771 kg

DRUGS (12)
  1. CLARINEX (UNITED STATES) [Concomitant]
     Indication: PRODUCT USED FOR UNKNOWN INDICATION
  2. LEXAPRO [Concomitant]
     Indication: PRODUCT USED FOR UNKNOWN INDICATION
  3. NASONEX [Concomitant]
     Indication: PRODUCT USED FOR UNKNOWN INDICATION
  4. ZANTAC [Concomitant]
     Indication: PRODUCT USED FOR UNKNOWN INDICATION
  5. INSULIN PUMP [Concomitant]
     Indication: PRODUCT USED FOR UNKNOWN INDICATION
  6. BENADRYL (UNITED STATES) [Concomitant]
     Indication: PREMEDICATION
  7. COMBIVENT [Concomitant]
     Indication: PRODUCT USED FOR UNKNOWN INDICATION
  8. SINGULAIR [Concomitant]
     Indication: PRODUCT USED FOR UNKNOWN INDICATION
  9. XOPENEX [Concomitant]
     Indication: PRODUCT USED FOR UNKNOWN INDICATION
  10. XOLAIR [Suspect]
     Indication: ASTHMA
     Dosage: 300 MG, Q2W
     Route: 058
     Dates: start: 20101106, end: 20110525
  11. ALLEGRA [Concomitant]
     Indication: PREMEDICATION
  12. ZEGERID [Concomitant]
     Indication: PRODUCT USED FOR UNKNOWN INDICATION

REACTIONS (4)
  - BLOOD GLUCOSE INCREASED [None]
  - PRURITUS GENERALISED [None]
  - DYSPNOEA [None]
  - FEELING HOT [None]
